FAERS Safety Report 9221955 (Version 1)
Quarter: 2013Q2

REPORT INFORMATION
  Report Type: Spontaneous
  Country: US (occurrence: US)
  Receive Date: 20130410
  Receipt Date: 20130410
  Transmission Date: 20140414
  Serious: No
  Sender: FDA-Public Use
  Company Number: US-PFIZER INC-2013108719

PATIENT
  Age: 63 Year
  Sex: Male
  Weight: 79.82 kg

DRUGS (5)
  1. LEVOXYL [Suspect]
     Indication: THYROID CANCER
     Dosage: UNK
     Dates: start: 2006
  2. GLIPIZIDE [Suspect]
     Indication: DIABETES MELLITUS
     Dosage: 2.5 MG, 2X/DAY
     Dates: start: 2000
  3. METFORMIN HCL [Suspect]
     Indication: DIABETES MELLITUS
     Dosage: 1000 MG, 2X/DAY
     Dates: start: 2007
  4. LISINOPRIL [Concomitant]
     Indication: HYPERTENSION
     Dosage: 40 MG, 1X/DAY
     Dates: start: 2000
  5. HYDROCHLOROTHIAZIDE [Concomitant]
     Indication: HYPERTENSION
     Dosage: UNK

REACTIONS (4)
  - Pain [Unknown]
  - Pain in extremity [Recovering/Resolving]
  - Back pain [Unknown]
  - Drug ineffective [Not Recovered/Not Resolved]
